FAERS Safety Report 7261685-8 (Version None)
Quarter: 2011Q1

REPORT INFORMATION
  Report Type: 
  Country: None (occurrence: None)
  Receive Date: 20110130
  Receipt Date: 20101101
  Transmission Date: 20110831
  Serious: No
  Sender: FDA-Public Use
  Company Number: US-ABBOTT-10P-163-0683057-00

PATIENT
  Sex: Female
  Weight: 113.5 kg

DRUGS (4)
  1. HUMIRA [Suspect]
     Indication: CROHN'S DISEASE
     Route: 058
     Dates: start: 20060101
  2. METHOTREXATE [Suspect]
     Dates: start: 20091101, end: 20091201
  3. HUMIRA [Suspect]
     Indication: SPONDYLOARTHROPATHY
  4. METHOTREXATE [Suspect]
     Indication: PRODUCT USED FOR UNKNOWN INDICATION
     Dates: start: 20100301, end: 20100401

REACTIONS (3)
  - DYSPNOEA [None]
  - NASOPHARYNGITIS [None]
  - SINUSITIS [None]
